FAERS Safety Report 24313614 (Version 2)
Quarter: 2024Q3

REPORT INFORMATION
  Report Type: Report from Study
  Country: US (occurrence: US)
  Receive Date: 20240912
  Receipt Date: 20240924
  Transmission Date: 20241016
  Serious: No
  Sender: DR REDDYS
  Company Number: US-DRL-USA-CLI/USA/24/0013008

PATIENT
  Age: 18 Year
  Sex: Male
  Weight: 87 kg

DRUGS (1)
  1. JAVYGTOR [Suspect]
     Active Substance: SAPROPTERIN DIHYDROCHLORIDE
     Indication: Phenylketonuria
     Route: 048

REACTIONS (2)
  - Arthritis [Not Recovered/Not Resolved]
  - Arthralgia [Not Recovered/Not Resolved]
